FAERS Safety Report 9006815 (Version 3)
Quarter: 2013Q4

REPORT INFORMATION
  Report Type: Spontaneous
  Country: US (occurrence: None)
  Receive Date: 20120517
  Receipt Date: 20131226
  Transmission Date: 20140711
  Serious: Yes (Other)
  Sender: FDA-Public Use
  Company Number: PHHY2011US01833

PATIENT
  Age: 57 Year
  Sex: Female
  Weight: 66.7 kg

DRUGS (1)
  1. SANDOSTATIN LAR DEPOT [Suspect]
     Indication: NEUROENDOCRINE TUMOUR
     Route: 030
     Dates: start: 20070801

REACTIONS (6)
  - Pain [None]
  - Diarrhoea [None]
  - Disease progression [None]
  - Neoplasm malignant [None]
  - Back pain [None]
  - 5-hydroxyindolacetic acid in urine increased [None]
